FAERS Safety Report 6523852-8 (Version None)
Quarter: 2009Q4

REPORT INFORMATION
  Report Type: 
  Country: None (occurrence: None)
  Receive Date: 20091231
  Receipt Date: 20091223
  Transmission Date: 20100525
  Serious: Yes (Hospitalization, Other)
  Sender: FDA-Public Use
  Company Number: US-JNJFOC-20091206984

PATIENT
  Sex: Female

DRUGS (5)
  1. REMICADE [Suspect]
     Route: 042
  2. REMICADE [Suspect]
     Indication: COLITIS ULCERATIVE
     Route: 042
  3. WELLBUTRIN [Concomitant]
  4. KLONOPIN [Concomitant]
     Route: 048
  5. ANTIBIOTICS [Concomitant]
     Indication: ACNE

REACTIONS (2)
  - DISTURBANCE IN ATTENTION [None]
  - DRUG INEFFECTIVE [None]
